FAERS Safety Report 22078354 (Version 1)
Quarter: 2023Q1

REPORT INFORMATION
  Report Type: Spontaneous
  Country: US (occurrence: US)
  Receive Date: 20230309
  Receipt Date: 20230309
  Transmission Date: 20230418
  Serious: No
  Sender: FDA-Public Use
  Company Number: US-AMGEN-USASP2023039306

PATIENT
  Sex: Female

DRUGS (6)
  1. REPATHA [Suspect]
     Active Substance: EVOLOCUMAB
     Indication: Blood cholesterol increased
     Dosage: 140 MILLIGRAM, Q2WK
     Route: 058
     Dates: start: 202211
  2. IRBESARTAN [Concomitant]
     Active Substance: IRBESARTAN
     Indication: Hypertension
     Dosage: 300 MILLIGRAM
  3. HYDROCHLOROTHIAZIDE [Concomitant]
     Active Substance: HYDROCHLOROTHIAZIDE
     Indication: Hypertension
     Dosage: 12.5 MILLIGRAM
  4. METFORMIN [Concomitant]
     Active Substance: METFORMIN HYDROCHLORIDE
     Dosage: 500 MILLIGRAM
  5. DEXILANT [Concomitant]
     Active Substance: DEXLANSOPRAZOLE
     Indication: Gastrointestinal disorder
     Dosage: 60 MILLIGRAM
  6. HYDROXYUREA [Concomitant]
     Active Substance: HYDROXYUREA
     Indication: Neoplasm malignant
     Dosage: 500 MILLIGRAM

REACTIONS (3)
  - Blood glucose increased [Unknown]
  - Arthralgia [Unknown]
  - Rhinorrhoea [Unknown]
